FAERS Safety Report 11359926 (Version 1)
Quarter: 2015Q3

REPORT INFORMATION
  Report Type: Other
  Country: DE (occurrence: DE)
  Receive Date: 20150810
  Receipt Date: 20150810
  Transmission Date: 20151125
  Serious: No
  Sender: FDA-Public Use
  Company Number: DE-LUPIN PHARMACEUTICALS INC.-2015-01641

PATIENT

DRUGS (1)
  1. IRBESARTAN. [Suspect]
     Active Substance: IRBESARTAN
     Indication: PRODUCT USED FOR UNKNOWN INDICATION
     Dosage: 11.5 MG/KG BODY WEIGHT
     Route: 048

REACTIONS (4)
  - Flushing [Recovered/Resolved]
  - Somnolence [Recovered/Resolved]
  - Accidental poisoning [Unknown]
  - Hyperhidrosis [Recovered/Resolved]
